FAERS Safety Report 10752348 (Version 1)
Quarter: 2015Q1

REPORT INFORMATION
  Report Type: Other
  Country: GB (occurrence: GB)
  Receive Date: 20150130
  Receipt Date: 20150130
  Transmission Date: 20150721
  Serious: Yes (Disabling)
  Sender: FDA-Public Use
  Company Number: GB-PERRIGO-15GB000893

PATIENT
  Sex: Female

DRUGS (1)
  1. NAPROXEN 250MG 16028/0144 [Suspect]
     Active Substance: NAPROXEN
     Indication: PAIN
     Dosage: UNK
     Route: 065
     Dates: end: 20131130

REACTIONS (2)
  - Mouth swelling [Recovered/Resolved]
  - Stevens-Johnson syndrome [Recovered/Resolved]
